FAERS Safety Report 7931403 (Version 2)
Quarter: 2013Q1

REPORT INFORMATION
  Report Type: Spontaneous
  Country: VE (occurrence: VE)
  Receive Date: 20110505
  Receipt Date: 20130124
  Transmission Date: 20140127
  Serious: Yes (Death, Hospitalization, Other)
  Sender: FDA-Public Use
  Company Number: PHHY2011VE37097

PATIENT
  Age: 84 Year
  Sex: Female

DRUGS (3)
  1. DIOVAN HCT [Suspect]
     Indication: HYPERTENSION
     Dosage: 1 DF, (160 MG VALS AND 12.5 MG HCTZ)
     Route: 048
  2. CONCOR [Concomitant]
     Indication: ARRHYTHMIA
     Dosage: 2.5 MG, DAILY
     Route: 048
  3. CALCIO                             /00944201/ [Concomitant]
     Indication: SUPPLEMENTATION THERAPY
     Dosage: UNK UKN, UNK
     Route: 048

REACTIONS (3)
  - Arrhythmia [Fatal]
  - Hypertensive crisis [Recovered/Resolved]
  - Cardiac disorder [Unknown]
